FAERS Safety Report 11859232 (Version 3)
Quarter: 2016Q3

REPORT INFORMATION
  Report Type: Report from Study
  Country: GB (occurrence: GB)
  Receive Date: 20151221
  Receipt Date: 20160908
  Transmission Date: 20161109
  Serious: Yes (Other)
  Sender: FDA-Public Use
  Company Number: GB-AMGEN-GBRCT2015135518

PATIENT
  Age: 67 Year
  Sex: Male

DRUGS (4)
  1. DEXAMETHASONE. [Concomitant]
     Active Substance: DEXAMETHASONE
     Indication: PLASMA CELL MYELOMA
     Dosage: 40 MG, PER CHEMO REGIM
     Route: 048
     Dates: start: 20151020
  2. LENALIDOMIDE [Suspect]
     Active Substance: LENALIDOMIDE
     Indication: PLASMA CELL MYELOMA
     Dosage: 25 MG, PER CHEMO REGIM
     Route: 048
     Dates: start: 20151019
  3. CARFILZOMIB [Suspect]
     Active Substance: CARFILZOMIB
     Indication: PLASMA CELL MYELOMA
     Dosage: 36 MG/M2, PER CHEMO REGIM
     Route: 042
     Dates: start: 20151020, end: 20151208
  4. CYCLOPHOSPHAMIDE. [Suspect]
     Active Substance: CYCLOPHOSPHAMIDE
     Indication: PLASMA CELL MYELOMA
     Dosage: 500 MG, PER CHEMO REGIM
     Route: 048
     Dates: start: 20151019

REACTIONS (1)
  - Liver function test abnormal [Recovered/Resolved]

NARRATIVE: CASE EVENT DATE: 20151211
